FAERS Safety Report 7262660-X (Version None)
Quarter: 2011Q1

REPORT INFORMATION
  Report Type: 
  Country: None (occurrence: None)
  Receive Date: 20110130
  Receipt Date: 20100919
  Transmission Date: 20110831
  Serious: No
  Sender: FDA-Public Use
  Company Number: US-ABBOTT-10P-163-0671922-00

PATIENT
  Age: 55 Year
  Sex: Female

DRUGS (3)
  1. VITAMIN B-12 [Concomitant]
     Indication: PRODUCT USED FOR UNKNOWN INDICATION
     Dosage: 1 CC MONTHLY
  2. HUMIRA [Suspect]
     Indication: CROHN'S DISEASE
     Dates: start: 20100825
  3. UNKNOWN MEDICATION [Concomitant]
     Indication: TRIGEMINAL NEURALGIA

REACTIONS (1)
  - OROPHARYNGEAL PAIN [None]
